FAERS Safety Report 18700995 (Version 1)
Quarter: 2021Q1

REPORT INFORMATION
  Report Type: Spontaneous
  Country: US (occurrence: US)
  Receive Date: 20210104
  Receipt Date: 20210104
  Transmission Date: 20210419
  Serious: Yes (Hospitalization)
  Sender: FDA-Public Use
  Company Number: None

PATIENT
  Age: 58 Year
  Sex: Female

DRUGS (19)
  1. TOBRA/DEXAME [Concomitant]
  2. BUPROPN HCL XL [Concomitant]
  3. MOXIFLOXACIN. [Concomitant]
     Active Substance: MOXIFLOXACIN
  4. PROTONIX [Concomitant]
     Active Substance: PANTOPRAZOLE SODIUM
  5. TRIAMCINOLON [Concomitant]
  6. BUSPIRONE [Concomitant]
     Active Substance: BUSPIRONE HYDROCHLORIDE
  7. DOXEPIN [Concomitant]
     Active Substance: DOXEPIN
  8. DEXTROAMPHET SACCHARAT, AMPHET ASPARTATE, DEXTROAMPHET SULFATE AND AMPHET SULFAT [Concomitant]
     Active Substance: AMPHETAMINE ASPARTATE\AMPHETAMINE SULFATE\DEXTROAMPHETAMINE SACCHARATE\DEXTROAMPHETAMINE SULFATE
  9. ANUCORT?HC [Concomitant]
     Active Substance: HYDROCORTISONE ACETATE
  10. LEVOTHYROXIN [Concomitant]
     Active Substance: LEVOTHYROXINE
  11. AMLODIPINE [Concomitant]
     Active Substance: AMLODIPINE BESYLATE
  12. PANTOPRAZOLE [Concomitant]
     Active Substance: PANTOPRAZOLE
  13. ENBREL [Suspect]
     Active Substance: ETANERCEPT
     Indication: RHEUMATOID ARTHRITIS
     Route: 058
     Dates: start: 20200218
  14. CELECOXIB. [Concomitant]
     Active Substance: CELECOXIB
  15. DOK [Concomitant]
     Active Substance: DOCUSATE SODIUM
  16. DULOXETINE. [Concomitant]
     Active Substance: DULOXETINE
  17. L?METHYLFOLA [Concomitant]
  18. LORAZEPAM. [Concomitant]
     Active Substance: LORAZEPAM
  19. TRAMADOL HCL [Concomitant]
     Active Substance: TRAMADOL HYDROCHLORIDE

REACTIONS (2)
  - Therapy interrupted [None]
  - Urinary tract operation [None]

NARRATIVE: CASE EVENT DATE: 20210104
